FAERS Safety Report 22130585 (Version 1)
Quarter: 2023Q1

REPORT INFORMATION
  Report Type: Report from Study
  Country: US (occurrence: US)
  Receive Date: 20230323
  Receipt Date: 20230323
  Transmission Date: 20230418
  Serious: Yes (Death, Life-Threatening, Hospitalization)
  Sender: FDA-Public Use
  Company Number: US-EXELIXIS-XL18423061996

PATIENT

DRUGS (2)
  1. PLACEBO [Suspect]
     Active Substance: UNSPECIFIED INGREDIENT
     Indication: Carcinoid tumour
     Dosage: 60 MG
     Dates: start: 20220808, end: 20230104
  2. CABOZANTINIB [Suspect]
     Active Substance: CABOZANTINIB
     Indication: Carcinoid tumour
     Dosage: 60 MG
     Dates: start: 20220808, end: 20230104

REACTIONS (1)
  - Duodenal perforation [Fatal]

NARRATIVE: CASE EVENT DATE: 20230104
